FAERS Safety Report 4486397-5 (Version None)
Quarter: 2004Q4

REPORT INFORMATION
  Report Type: 
  Country: None (occurrence: None)
  Receive Date: 20041022
  Receipt Date: 20041012
  Transmission Date: 20050328
  Serious: Yes (Hospitalization)
  Sender: FDA-Public Use
  Company Number: 2004072857

PATIENT
  Age: 48 Year
  Sex: Female
  Weight: 66.6788 kg

DRUGS (1)
  1. BENADRYL [Suspect]
     Indication: RHINORRHOEA
     Dosage: 1 ULTRATAB BID, ORAL
     Route: 048
     Dates: start: 20040929, end: 20041001

REACTIONS (2)
  - HYPOAESTHESIA [None]
  - HYPOAESTHESIA ORAL [None]
